FAERS Safety Report 14163967 (Version 1)
Quarter: 2017Q4

REPORT INFORMATION
  Report Type: Spontaneous
  Country: US (occurrence: US)
  Receive Date: 20171107
  Receipt Date: 20171107
  Transmission Date: 20180321
  Serious: Yes (Hospitalization)
  Sender: FDA-Public Use
  Company Number: US-LUPIN PHARMACEUTICALS INC.-2017-06337

PATIENT

DRUGS (1)
  1. GAVILYTE - N [Suspect]
     Active Substance: POLYETHYLENE GLYCOL 3350\POTASSIUM CHLORIDE\SODIUM BICARBONATE\SODIUM CHLORIDE
     Indication: BOWEL PREPARATION
     Dosage: UNK
     Route: 065
     Dates: start: 20171022

REACTIONS (4)
  - Eructation [Unknown]
  - Vomiting [Unknown]
  - Tremor [Unknown]
  - Feeling cold [Unknown]

NARRATIVE: CASE EVENT DATE: 20171023
